FAERS Safety Report 6790154-4 (Version None)
Quarter: 2010Q2

REPORT INFORMATION
  Report Type: 
  Country: None (occurrence: None)
  Receive Date: 20100624
  Receipt Date: 20100614
  Transmission Date: 20101027
  Serious: Yes (Hospitalization)
  Sender: FDA-Public Use
  Company Number: DE-BAYER-201022526GPV

PATIENT
  Age: 44 Year
  Sex: Male
  Weight: 68 kg

DRUGS (12)
  1. SORAFENIB [Suspect]
     Indication: HEPATIC NEOPLASM MALIGNANT
     Dosage: TOTAL DAILY DOSE: 800 MG
     Route: 048
     Dates: start: 20100315, end: 20100323
  2. ERLOTINIB/PLACEBO [Suspect]
     Indication: HEPATIC NEOPLASM MALIGNANT
     Route: 048
     Dates: start: 20100315, end: 20100323
  3. BIFETERAL [Concomitant]
     Indication: HEPATIC ENCEPHALOPATHY
     Route: 048
     Dates: start: 20091202
  4. PROPRANOLOL [Concomitant]
     Indication: VARICES OESOPHAGEAL
     Route: 048
  5. PROPRANOLOL [Concomitant]
  6. RANITIDINE [Concomitant]
     Indication: PROPHYLAXIS
     Route: 048
     Dates: start: 20100201
  7. SPIRONOLACTONE [Concomitant]
     Indication: ASCITES
     Route: 048
     Dates: start: 20091202, end: 20100323
  8. TORSEMIDE [Concomitant]
     Indication: ASCITES
     Route: 048
     Dates: start: 20091202
  9. FERROSANOL [Concomitant]
     Indication: ANAEMIA
     Route: 048
     Dates: start: 20091202
  10. OBSIDAN [Concomitant]
     Indication: VARICES OESOPHAGEAL
     Dates: start: 20091102
  11. OMEPRAZOLE [Concomitant]
     Indication: GASTRIC ULCER
     Dates: start: 20091202, end: 20100222
  12. METAMIZOL [Concomitant]
     Indication: ABDOMINAL PAIN
     Dates: start: 20100209

REACTIONS (2)
  - HYPERKALAEMIA [None]
  - RENAL FAILURE [None]
